FAERS Safety Report 23379140 (Version 1)
Quarter: 2024Q1

REPORT INFORMATION
  Report Type: Spontaneous
  Country: US (occurrence: None)
  Receive Date: 20240107
  Receipt Date: 20240107
  Transmission Date: 20240410
  Serious: Yes (Other)
  Sender: FDA-Public Use
  Company Number: None

PATIENT
  Age: 44 Year
  Sex: Female

DRUGS (1)
  1. ZINC OXIDE [Suspect]
     Active Substance: ZINC OXIDE
     Indication: Prophylaxis against solar radiation
     Dosage: OTHER QUANTITY : 1 1 PUMP;?
     Route: 061
     Dates: start: 20240102, end: 20240104

REACTIONS (2)
  - Rash [None]
  - Erythema [None]

NARRATIVE: CASE EVENT DATE: 20240105
